FAERS Safety Report 15580221 (Version 1)
Quarter: 2018Q4

REPORT INFORMATION
  Report Type: Spontaneous
  Country: CO (occurrence: CO)
  Receive Date: 20181102
  Receipt Date: 20181102
  Transmission Date: 20190205
  Serious: Yes (Other)
  Sender: FDA-Public Use
  Company Number: CO-JNJFOC-20181039524

PATIENT
  Age: 59 Year
  Sex: Male

DRUGS (5)
  1. CLOZAPINE. [Concomitant]
     Active Substance: CLOZAPINE
     Route: 065
  2. PIPOTIAZINE [Concomitant]
     Active Substance: PIPOTIAZINE
     Route: 065
  3. BIPERIDEN [Concomitant]
     Active Substance: BIPERIDEN
     Route: 065
  4. INVEGA SUSTENNA [Suspect]
     Active Substance: PALIPERIDONE PALMITATE
     Indication: SCHIZOPHRENIA
     Route: 030
  5. RISPERDAL CONSTA [Concomitant]
     Active Substance: RISPERIDONE
     Route: 030

REACTIONS (3)
  - Mobility decreased [Unknown]
  - Somnolence [Unknown]
  - Hypoaesthesia [Unknown]
